FAERS Safety Report 7567862-0 (Version None)
Quarter: 2011Q2

REPORT INFORMATION
  Report Type: 
  Country: None (occurrence: None)
  Receive Date: 20110623
  Receipt Date: 20110616
  Transmission Date: 20111010
  Serious: Yes (Hospitalization)
  Sender: FDA-Public Use
  Company Number: FR-SANOFI-AVENTIS-2011SA008102

PATIENT
  Age: 77 Year
  Sex: Female

DRUGS (6)
  1. PREVISCAN [Suspect]
     Indication: PULMONARY EMBOLISM
     Route: 048
     Dates: start: 20101229, end: 20110103
  2. ZOPICLONE [Concomitant]
     Route: 048
  3. CACIT VITAMINE D3 [Concomitant]
     Route: 048
  4. ART [Concomitant]
     Route: 048
  5. LOVENOX [Suspect]
     Indication: PULMONARY EMBOLISM
     Route: 058
     Dates: start: 20101207, end: 20110102
  6. LEVOTHYROXINE SODIUM [Concomitant]
     Route: 048

REACTIONS (1)
  - ACUTE GENERALISED EXANTHEMATOUS PUSTULOSIS [None]
